FAERS Safety Report 9293904 (Version 1)
Quarter: 2013Q1

REPORT INFORMATION
  Report Type: Spontaneous
  Country: US (occurrence: None)
  Receive Date: 20121218
  Receipt Date: 20121218
  Transmission Date: 20140127
  Serious: Yes (Other)
  Sender: FDA-Public Use
  Company Number: PHEH2012US011376

PATIENT
  Age: 59 Year
  Sex: Female

DRUGS (3)
  1. FEMARA [Suspect]
     Route: 048
     Dates: start: 201204, end: 20120430
  2. LIPITOR/NET/ ( ATORVASTATIN CALCIUM) [Concomitant]
  3. LEVOXYL ( LEVOTHYROXINE SODIUM) [Concomitant]

REACTIONS (4)
  - Arthritis [None]
  - Trigger finger [None]
  - Paraesthesia [None]
  - Hot flush [None]
